FAERS Safety Report 9308488 (Version 1)
Quarter: 2013Q2

REPORT INFORMATION
  Report Type: Report from Study
  Country: NL (occurrence: NL)
  Receive Date: 20130524
  Receipt Date: 20130524
  Transmission Date: 20140414
  Serious: Yes (Other)
  Sender: FDA-Public Use
  Company Number: NL-ROCHE-1226428

PATIENT
  Age: 76 Year
  Sex: Male

DRUGS (1)
  1. ALTEPLASE [Suspect]
     Indication: ISCHAEMIC STROKE
     Dosage: (MAXIMUM 90 MG) WITHIN 4.5 HOURS AFTER SYMPTOM ONSET
     Route: 042

REACTIONS (2)
  - Haemorrhage intracranial [Recovered/Resolved]
  - Hemianopia [Recovered/Resolved]
